FAERS Safety Report 21961962 (Version 1)
Quarter: 2023Q1

REPORT INFORMATION
  Report Type: Spontaneous
  Country: CA (occurrence: CA)
  Receive Date: 20230207
  Receipt Date: 20230207
  Transmission Date: 20230418
  Serious: Yes (Death, Other)
  Sender: FDA-Public Use
  Company Number: CA-002147023-NVSC2023CA026376

PATIENT
  Age: 66 Year
  Sex: Male
  Weight: 100 kg

DRUGS (1)
  1. CIPROFLOXACIN [Suspect]
     Active Substance: CIPROFLOXACIN
     Indication: Product used for unknown indication
     Dosage: UNK
     Route: 065

REACTIONS (15)
  - Death [Fatal]
  - Adverse drug reaction [Fatal]
  - Fall [Fatal]
  - Weight decreased [Fatal]
  - Pneumonia [Fatal]
  - Appetite disorder [Fatal]
  - Malaise [Fatal]
  - Mobility decreased [Fatal]
  - Respiratory rate increased [Fatal]
  - Urinary tract infection [Fatal]
  - Dyspnoea [Fatal]
  - Dyspnoea [Fatal]
  - Fatigue [Fatal]
  - Muscular weakness [Fatal]
  - Product dose omission issue [Fatal]
